FAERS Safety Report 12753724 (Version 1)
Quarter: 2016Q3

REPORT INFORMATION
  Report Type: Spontaneous
  Country: FR (occurrence: FR)
  Receive Date: 20160916
  Receipt Date: 20160916
  Transmission Date: 20161109
  Serious: Yes (Hospitalization)
  Sender: FDA-Public Use
  Company Number: FR-BAXTER-2016BAX046224

PATIENT
  Age: 72 Year
  Sex: Female
  Weight: 66 kg

DRUGS (15)
  1. MABTHERA [Suspect]
     Active Substance: RITUXIMAB
     Indication: DIFFUSE LARGE B-CELL LYMPHOMA
     Dosage: R-CHOP PROTOCOL, THREE COURSES
     Route: 058
  2. ONDANSETRON ACCORD [Suspect]
     Active Substance: ONDANSETRON
     Indication: PRODUCT USED FOR UNKNOWN INDICATION
     Dosage: INFUSION
     Route: 042
     Dates: start: 20151221
  3. ENDOXAN 1000 MG, POUDRE POUR SOLUTION INJECTABLE [Suspect]
     Active Substance: CYCLOPHOSPHAMIDE
     Indication: DIFFUSE LARGE B-CELL LYMPHOMA
     Dosage: INFUSION, R-CHOP PROTOCOL, THREE COURSES
     Route: 042
  4. VINCRISTINE HOSPIRA [Suspect]
     Active Substance: VINCRISTINE
     Indication: DIFFUSE LARGE B-CELL LYMPHOMA
     Dosage: INFUSION, R-CHOP PROTOCOL, THREE COURSES
     Route: 042
  5. METHYLPREDNISOLONE MYLAN [Suspect]
     Active Substance: METHYLPREDNISOLONE
     Indication: DIFFUSE LARGE B-CELL LYMPHOMA
     Dosage: INFUSION, R-CHOP PROTOCOL, THREE COURSES
     Route: 042
  6. METHOTREXATE. [Suspect]
     Active Substance: METHOTREXATE
     Indication: DIFFUSE LARGE B-CELL LYMPHOMA
     Route: 037
     Dates: start: 20151221
  7. POLARAMINE [Suspect]
     Active Substance: DEXCHLORPHENIRAMINE MALEATE
     Indication: PRODUCT USED FOR UNKNOWN INDICATION
     Route: 042
     Dates: start: 20151221
  8. DOXORUBICINE TEVA [Suspect]
     Active Substance: DOXORUBICIN
     Dosage: INFUSION, R-CHOP PROTOCOL, FOURTH COURSE
     Route: 042
     Dates: start: 20151221
  9. METHYLPREDNISOLONE MYLAN [Suspect]
     Active Substance: METHYLPREDNISOLONE
     Dosage: INFUSION, R-CHOP PROTOCOL, FOURTH COURSE
     Route: 042
     Dates: start: 20151221
  10. CORTANCYL [Suspect]
     Active Substance: PREDNISONE
     Indication: DIFFUSE LARGE B-CELL LYMPHOMA
     Route: 048
     Dates: start: 20151222
  11. PARACETAMOL [Suspect]
     Active Substance: ACETAMINOPHEN
     Indication: PRODUCT USED FOR UNKNOWN INDICATION
     Dosage: INFUSION
     Route: 042
     Dates: start: 20151221
  12. MABTHERA [Suspect]
     Active Substance: RITUXIMAB
     Dosage: R-CHOP PROTOCOL, FOURTH COURSE
     Route: 058
     Dates: start: 20151221
  13. ENDOXAN 1000 MG, POUDRE POUR SOLUTION INJECTABLE [Suspect]
     Active Substance: CYCLOPHOSPHAMIDE
     Dosage: INFUSION, R-CHOP PROTOCOL, FOURTH COURSE
     Route: 042
     Dates: start: 20151221
  14. DOXORUBICINE TEVA [Suspect]
     Active Substance: DOXORUBICIN
     Indication: DIFFUSE LARGE B-CELL LYMPHOMA
     Dosage: INFUSION, R-CHOP PROTOCOL, THREE COURSES
     Route: 042
  15. VINCRISTINE HOSPIRA [Suspect]
     Active Substance: VINCRISTINE
     Dosage: INFUSION, R-CHOP PROTOCOL, FOURTH COURSE
     Route: 042
     Dates: start: 20151221

REACTIONS (2)
  - Acute prerenal failure [Recovered/Resolved]
  - Campylobacter gastroenteritis [Recovered/Resolved]

NARRATIVE: CASE EVENT DATE: 20151230
